FAERS Safety Report 24109466 (Version 3)
Quarter: 2024Q3

REPORT INFORMATION
  Report Type: Report from Study
  Country: US (occurrence: US)
  Receive Date: 20240718
  Receipt Date: 20240920
  Transmission Date: 20241017
  Serious: Yes (Hospitalization)
  Sender: NOVARTIS
  Company Number: US-002147023-NVSC2024US135909

PATIENT
  Age: 17 Year
  Sex: Female

DRUGS (2)
  1. ILARIS [Suspect]
     Active Substance: CANAKINUMAB
     Indication: Pyrexia
     Dosage: 150 MG, Q5W
     Route: 058
     Dates: start: 20220204
  2. ILARIS [Suspect]
     Active Substance: CANAKINUMAB
     Dosage: 150 MG, Q4W (MOST RECENT ILARIS INJECTION)
     Route: 058
     Dates: start: 20240808

REACTIONS (2)
  - Escherichia infection [Recovered/Resolved]
  - Periorbital cellulitis [Unknown]

NARRATIVE: CASE EVENT DATE: 20240615
